FAERS Safety Report 20045081 (Version 3)
Quarter: 2022Q1

REPORT INFORMATION
  Report Type: Report from Study
  Country: US (occurrence: US)
  Receive Date: 20211108
  Receipt Date: 20220303
  Transmission Date: 20220423
  Serious: Yes (Other)
  Sender: FDA-Public Use
  Company Number: US-UCBSA-2021051451

PATIENT
  Sex: Female

DRUGS (19)
  1. ROTIGOTINE [Suspect]
     Active Substance: ROTIGOTINE
     Indication: Parkinson^s disease
     Dosage: 4 MILLIGRAM, ONCE DAILY (QD)
     Route: 062
  2. ROTIGOTINE [Suspect]
     Active Substance: ROTIGOTINE
     Indication: Restless legs syndrome
  3. WELLBUTRIN XL [Concomitant]
     Active Substance: BUPROPION HYDROCHLORIDE
     Indication: Product used for unknown indication
  4. VITAMIN D3 [Concomitant]
     Active Substance: CHOLECALCIFEROL
     Indication: Product used for unknown indication
  5. KLONOPIN [Concomitant]
     Active Substance: CLONAZEPAM
     Indication: Product used for unknown indication
  6. CYMBALTA [Concomitant]
     Active Substance: DULOXETINE HYDROCHLORIDE
     Indication: Product used for unknown indication
  7. ERGOCALCIFEROL [Concomitant]
     Active Substance: ERGOCALCIFEROL
     Indication: Product used for unknown indication
  8. FERROUS SULFATE [Concomitant]
     Active Substance: FERROUS SULFATE
     Indication: Product used for unknown indication
  9. PROZAC [Concomitant]
     Active Substance: FLUOXETINE HYDROCHLORIDE
     Indication: Product used for unknown indication
  10. FOLVITE [FOLIC ACID] [Concomitant]
     Indication: Product used for unknown indication
  11. NEURONTIN [Concomitant]
     Active Substance: GABAPENTIN
     Indication: Product used for unknown indication
  12. ASIAN GINSENG [Concomitant]
     Active Substance: ASIAN GINSENG
     Indication: Product used for unknown indication
  13. PLAQUENIL [Concomitant]
     Active Substance: HYDROXYCHLOROQUINE SULFATE
     Indication: Product used for unknown indication
  14. ARAVA [Concomitant]
     Active Substance: LEFLUNOMIDE
     Indication: Product used for unknown indication
  15. MOBIC [Concomitant]
     Active Substance: MELOXICAM
     Indication: Product used for unknown indication
  16. GLUCOPHAGE [Concomitant]
     Active Substance: METFORMIN HYDROCHLORIDE
     Indication: Product used for unknown indication
  17. DELTASONE [Concomitant]
     Active Substance: PREDNISONE
     Indication: Product used for unknown indication
  18. ULTRAM [Concomitant]
     Active Substance: TRAMADOL HYDROCHLORIDE
     Indication: Product used for unknown indication
  19. DESYREL [Concomitant]
     Active Substance: TRAZODONE HYDROCHLORIDE
     Indication: Product used for unknown indication

REACTIONS (6)
  - Brain neoplasm [Not Recovered/Not Resolved]
  - Memory impairment [Not Recovered/Not Resolved]
  - Condition aggravated [Not Recovered/Not Resolved]
  - Prescribed overdose [Unknown]
  - Off label use [Unknown]
  - Therapy interrupted [Unknown]
